FAERS Safety Report 18418496 (Version 1)
Quarter: 2020Q4

REPORT INFORMATION
  Report Type: Spontaneous
  Country: US (occurrence: US)
  Receive Date: 20201022
  Receipt Date: 20201022
  Transmission Date: 20210114
  Serious: Yes (Hospitalization)
  Sender: FDA-Public Use
  Company Number: None

PATIENT
  Age: 73 Year
  Sex: Female
  Weight: 71 kg

DRUGS (1)
  1. HYDROCHLOROTHIAZIDE (HYDROCHLOROTHIAZIDE 25MG TAB) [Suspect]
     Active Substance: HYDROCHLOROTHIAZIDE
     Indication: HYPERTENSION
     Route: 048
     Dates: start: 20081208, end: 20200820

REACTIONS (10)
  - Nausea [None]
  - Decreased appetite [None]
  - Therapy cessation [None]
  - Chest pain [None]
  - Peripheral swelling [None]
  - Asthenia [None]
  - Dyspnoea [None]
  - Dizziness [None]
  - Hyponatraemia [None]
  - Fall [None]

NARRATIVE: CASE EVENT DATE: 20200920
